FAERS Safety Report 19212916 (Version 1)
Quarter: 2021Q2

REPORT INFORMATION
  Report Type: Other
  Country: US (occurrence: US)
  Receive Date: 20210504
  Receipt Date: 20210504
  Transmission Date: 20210717
  Serious: Yes (Other)
  Sender: FDA-Public Use
  Company Number: US-NEUROCRINE BIOSCIENCES INC.-2021NBI02149

PATIENT

DRUGS (5)
  1. LOSARTAN POTASSIUM. [Concomitant]
     Active Substance: LOSARTAN POTASSIUM
  2. ONGENTYS [Suspect]
     Active Substance: OPICAPONE
     Indication: PARKINSON^S DISEASE
     Dosage: 50 MILLIGRAM, QD
     Route: 048
  3. LINZESS [Concomitant]
     Active Substance: LINACLOTIDE
     Dosage: 145 MILLIGRAM
  4. HYDROCHLORIDE B1 [Concomitant]
     Dosage: UNK
  5. RALOXIFENE. [Concomitant]
     Active Substance: RALOXIFENE
     Dosage: UNK

REACTIONS (1)
  - Neoplasm malignant [Unknown]
